FAERS Safety Report 15351809 (Version 1)
Quarter: 2018Q3

REPORT INFORMATION
  Report Type: Spontaneous
  Country: US (occurrence: US)
  Receive Date: 20180905
  Receipt Date: 20180905
  Transmission Date: 20181010
  Serious: Yes (Other)
  Sender: FDA-Public Use
  Company Number: US-SUNOVION-2018SUN003414

PATIENT
  Age: 73 Year
  Sex: Female

DRUGS (1)
  1. LONHALA MAGNAIR [Suspect]
     Active Substance: GLYCOPYRROLATE
     Indication: CHRONIC OBSTRUCTIVE PULMONARY DISEASE
     Dosage: 25 MCG/ML, BID
     Route: 055
     Dates: start: 20180819, end: 20180821

REACTIONS (2)
  - Candida infection [Recovered/Resolved]
  - Diaphragmatic disorder [Recovered/Resolved]

NARRATIVE: CASE EVENT DATE: 201808
